FAERS Safety Report 8973127 (Version 1)
Quarter: 2012Q4

REPORT INFORMATION
  Report Type: 
  Country: IE (occurrence: IE)
  Receive Date: 20121219
  Receipt Date: 20121219
  Transmission Date: 20130627
  Serious: Yes (Hospitalization)
  Sender: FDA-Public Use
  Company Number: IE-ELI_LILLY_AND_COMPANY-IE201212002474

PATIENT
  Sex: Female

DRUGS (6)
  1. FORSTEO [Suspect]
     Indication: OSTEOPOROSIS
     Dosage: 20 ug, unknown
     Route: 058
     Dates: start: 20121107
  2. LIPITOR [Concomitant]
     Dosage: UNK, unknown
     Route: 065
  3. ARAVA [Concomitant]
     Dosage: UNK, unknown
     Route: 065
  4. PREDNISOLONE [Concomitant]
     Dosage: UNK, unknown
     Route: 065
  5. IMURAN [Concomitant]
     Dosage: UNK, unknown
     Route: 065
  6. SEPTRIN [Concomitant]
     Dosage: UNK, unknown
     Route: 065

REACTIONS (1)
  - Hypoaesthesia [Not Recovered/Not Resolved]
